FAERS Safety Report 5492331-1 (Version None)
Quarter: 2007Q4

REPORT INFORMATION
  Report Type: 
  Country: None (occurrence: None)
  Receive Date: 20071022
  Receipt Date: 20071011
  Transmission Date: 20080405
  Serious: Yes (Death)
  Sender: FDA-Public Use
  Company Number: US-AVENTIS-200710918US

PATIENT
  Sex: Female

DRUGS (11)
  1. LOVENOX [Suspect]
     Dosage: DOSE: 40 MG, ONE PREFILLED SYRINGE QD, DOSE UNKNOWN
     Route: 058
     Dates: start: 20061220, end: 20070129
  2. METOPROLOL [Suspect]
     Dosage: ROUTE: GASTROSTOMY TUBE
     Route: 050
  3. METOPROLOL [Suspect]
     Dosage: ROUTE: GASTROSTOMY TUBE
     Route: 050
  4. DILANTIN [Concomitant]
  5. KEPPRA [Concomitant]
  6. PREDNISONE [Concomitant]
     Dosage: DOSE: UNK
  7. DILAUDID [Concomitant]
     Indication: PAIN
     Dosage: DOSE: 2 MG PRN
  8. VALPROIC ACID [Concomitant]
     Dosage: DOSE: UNK
     Dates: start: 20060901
  9. IMMUNOSUPPRESSIVE AGENTS [Concomitant]
     Indication: STEM CELL TRANSPLANT
     Dosage: DOSE: UNK
     Dates: start: 20060723
  10. TACROLIMUS [Concomitant]
     Dosage: DOSE: UNK
     Dates: start: 20060801
  11. UNKNOWN DRUG [Concomitant]
     Dosage: DOSE: UNK

REACTIONS (10)
  - BLOOD CREATINE PHOSPHOKINASE INCREASED [None]
  - BLOOD PRESSURE DECREASED [None]
  - COUGH [None]
  - DRUG INEFFECTIVE [None]
  - DYSPNOEA [None]
  - HYPERSENSITIVITY [None]
  - HYPOVENTILATION [None]
  - PULMONARY EMBOLISM [None]
  - TACHYCARDIA [None]
  - TROPONIN INCREASED [None]
